FAERS Safety Report 6639867-5 (Version None)
Quarter: 2010Q1

REPORT INFORMATION
  Report Type: 
  Country: None (occurrence: None)
  Receive Date: 20100318
  Receipt Date: 20100311
  Transmission Date: 20100710
  Serious: Yes (Life-Threatening)
  Sender: FDA-Public Use
  Company Number: IT-ABBOTT-10P-083-0631953-00

PATIENT
  Age: 30 Year
  Sex: Female
  Weight: 90 kg

DRUGS (4)
  1. DEPAKIN [Suspect]
     Indication: PETIT MAL EPILEPSY
     Dosage: 1200 MG BOLUS ONCE
     Route: 040
     Dates: start: 20100210, end: 20100210
  2. DEPAKIN [Suspect]
     Indication: EPILEPSY
     Dosage: 1 MG / KG/ HOUR
     Route: 041
     Dates: start: 20100210, end: 20100210
  3. GARDENALE [Concomitant]
     Indication: DRUG USE FOR UNKNOWN INDICATION
     Route: 048
  4. ONGOING THERAPY [Concomitant]
     Indication: DRUG USE FOR UNKNOWN INDICATION

REACTIONS (6)
  - ATRIAL FIBRILLATION [None]
  - BRAIN OEDEMA [None]
  - COMA [None]
  - ELECTROENCEPHALOGRAM ABNORMAL [None]
  - NAUSEA [None]
  - VOMITING [None]
